FAERS Safety Report 14209617 (Version 1)
Quarter: 2017Q4

REPORT INFORMATION
  Report Type: Report from Study
  Country: US (occurrence: US)
  Receive Date: 20171121
  Receipt Date: 20171121
  Transmission Date: 20180321
  Serious: Yes (Other)
  Sender: FDA-Public Use
  Company Number: US-ROCHE-2028840

PATIENT
  Sex: Female

DRUGS (3)
  1. IMIPRAMINE [Concomitant]
     Active Substance: IMIPRAMINE
     Indication: PRODUCT USED FOR UNKNOWN INDICATION
     Route: 064
  2. CLONAZEPAM. [Suspect]
     Active Substance: CLONAZEPAM
     Indication: PRODUCT USED FOR UNKNOWN INDICATION
     Route: 064
  3. DESIPRAMINE [Concomitant]
     Active Substance: DESIPRAMINE
     Route: 064

REACTIONS (2)
  - Streptococcal infection [Recovered/Resolved]
  - Foetal exposure during pregnancy [Unknown]
